FAERS Safety Report 5374464-3 (Version None)
Quarter: 2007Q2

REPORT INFORMATION
  Report Type: 
  Country: None (occurrence: None)
  Receive Date: 20070629
  Receipt Date: 20070620
  Transmission Date: 20071010
  Serious: Yes (Other)
  Sender: FDA-Public Use
  Company Number: GB-BAYER-200710616BNE

PATIENT
  Age: 14 Year
  Sex: Male

DRUGS (2)
  1. CIPROFLOXACIN [Suspect]
     Indication: URINARY TRACT INFECTION
     Route: 048
     Dates: start: 20060222, end: 20060224
  2. RANITIDINE [Concomitant]
     Dates: end: 20060216

REACTIONS (2)
  - FACE OEDEMA [None]
  - VOMITING [None]
